FAERS Safety Report 23498175 (Version 1)
Quarter: 2024Q1

REPORT INFORMATION
  Report Type: Spontaneous
  Country: US (occurrence: None)
  Receive Date: 20240207
  Receipt Date: 20240207
  Transmission Date: 20240410
  Serious: No
  Sender: FDA-Public Use
  Company Number: US-ROCHE-3387300

PATIENT
  Sex: Female

DRUGS (2)
  1. XOLAIR [Suspect]
     Active Substance: OMALIZUMAB
     Indication: Asthma
     Route: 058
     Dates: start: 202201
  2. DUPIXENT [Suspect]
     Active Substance: DUPILUMAB
     Indication: Product used for unknown indication
     Dosage: INJECT 2 PENS UNDER THE SKIN ON DAY 1 THEN INJECT 1 PEN ON THE DAY 15, THEN 1 PEN EVERY 14 DAYS THER
     Route: 058

REACTIONS (2)
  - Nasal discomfort [Unknown]
  - Discomfort [Unknown]
